FAERS Safety Report 25126703 (Version 2)
Quarter: 2025Q2

REPORT INFORMATION
  Report Type: Spontaneous
  Country: US (occurrence: US)
  Receive Date: 20250327
  Receipt Date: 20250417
  Transmission Date: 20250717
  Serious: No
  Sender: COSETTE PHARMACEUTICALS INC
  Company Number: US-COSETTE-CP2025US000277

PATIENT
  Age: 65 Year
  Sex: Male
  Weight: 240 kg

DRUGS (2)
  1. CLOMIPHENE CITRATE [Suspect]
     Active Substance: CLOMIPHENE CITRATE
     Indication: Sperm concentration decreased
     Route: 048
     Dates: start: 20241231, end: 202501
  2. CLOMIPHENE CITRATE [Suspect]
     Active Substance: CLOMIPHENE CITRATE
     Route: 048
     Dates: start: 202503

REACTIONS (6)
  - Sciatica [Unknown]
  - Hypoaesthesia [Not Recovered/Not Resolved]
  - Pre-existing condition improved [Unknown]
  - Product prescribing issue [Unknown]
  - Product use issue [Unknown]
  - Product use in unapproved indication [Unknown]
